FAERS Safety Report 15185484 (Version 2)
Quarter: 2020Q3

REPORT INFORMATION
  Report Type: Report from Study
  Country: US (occurrence: US)
  Receive Date: 20180723
  Receipt Date: 20200817
  Transmission Date: 20201102
  Serious: Yes (Life-Threatening, Other)
  Sender: FDA-Public Use
  Company Number: US-SHIRE-US201827535

PATIENT
  Sex: Female

DRUGS (2)
  1. IMMUNOGLOBULIN HUMAN NORMAL [Concomitant]
     Active Substance: HUMAN IMMUNOGLOBULIN G
     Indication: PRIMARY IMMUNODEFICIENCY SYNDROME
     Route: 065
  2. HUMAN NORMAL IMMUNOGLOBULIN; LIQUID [Suspect]
     Active Substance: HUMAN IMMUNOGLOBULIN G
     Indication: PRIMARY IMMUNODEFICIENCY SYNDROME
     Route: 042

REACTIONS (12)
  - Cardiac arrest [Unknown]
  - Blood pressure decreased [Unknown]
  - Anxiety [Unknown]
  - Chest discomfort [Unknown]
  - Alopecia [Unknown]
  - Application site vesicles [Unknown]
  - Product supply issue [Unknown]
  - Meningitis aseptic [Unknown]
  - Chills [Unknown]
  - Supraventricular tachycardia [Unknown]
  - Poor venous access [Unknown]
  - Infusion related reaction [Unknown]
